FAERS Safety Report 9988559 (Version 1)
Quarter: 2014Q1

REPORT INFORMATION
  Report Type: Spontaneous
  Country: US (occurrence: US)
  Receive Date: 20140310
  Receipt Date: 20140310
  Transmission Date: 20141002
  Serious: No
  Sender: FDA-Public Use
  Company Number: US-BIOGENIDEC-2014BI018741

PATIENT
  Sex: Male

DRUGS (1)
  1. TECFIDERA [Suspect]
     Indication: MULTIPLE SCLEROSIS
     Dates: start: 20140217

REACTIONS (8)
  - Urinary incontinence [Unknown]
  - Asthenia [Not Recovered/Not Resolved]
  - Nervous system disorder [Not Recovered/Not Resolved]
  - Irritable bowel syndrome [Unknown]
  - Pharyngeal oedema [Unknown]
  - General symptom [Unknown]
  - Central nervous system lesion [Unknown]
  - Feeling hot [Not Recovered/Not Resolved]
